FAERS Safety Report 10537876 (Version 2)
Quarter: 2014Q4

REPORT INFORMATION
  Report Type: Spontaneous
  Country: US (occurrence: US)
  Receive Date: 20141023
  Receipt Date: 20141201
  Transmission Date: 20150529
  Serious: No
  Sender: FDA-Public Use
  Company Number: US-PFIZER INC-2014287610

PATIENT
  Age: 67 Year
  Sex: Female
  Weight: 86 kg

DRUGS (4)
  1. TRIAMTERENE. [Concomitant]
     Active Substance: TRIAMTERENE
     Dosage: 37.5 MG, DAILY
  2. LATANOPROST. [Suspect]
     Active Substance: LATANOPROST
     Dosage: UNK, 1X/DAY (2.5 M 1 DROP IN EACH EYE AT BED TIME)
     Route: 047
     Dates: start: 20141009
  3. LATANOPROST. [Suspect]
     Active Substance: LATANOPROST
     Indication: INTRAOCULAR PRESSURE INCREASED
     Dosage: 1 GTT EACH EYE, DAILY AT NIGHT
     Route: 047
     Dates: start: 20141009
  4. LATANOPROST. [Suspect]
     Active Substance: LATANOPROST
     Dosage: UNK

REACTIONS (2)
  - Eye irritation [Unknown]
  - Eye pain [Recovering/Resolving]

NARRATIVE: CASE EVENT DATE: 201410
